FAERS Safety Report 5306375-3 (Version None)
Quarter: 2007Q2

REPORT INFORMATION
  Report Type: 
  Country: None (occurrence: None)
  Receive Date: 20070417
  Receipt Date: 20070406
  Transmission Date: 20071010
  Serious: Yes (Death, Other)
  Sender: FDA-Public Use
  Company Number: 2007314444

PATIENT
  Age: 2 Month
  Sex: Male

DRUGS (4)
  1. PSEUDOEPHEDRINE HCL [Suspect]
  2. DEXTROMETHORPHAN HYDROBROMIDE [Suspect]
  3. MULTIVITAMIN [Concomitant]
  4. METOCLOPRAMIDE [Concomitant]

REACTIONS (1)
  - ENCEPHALOPATHY [None]
